FAERS Safety Report 7273170-8 (Version None)
Quarter: 2011Q1

REPORT INFORMATION
  Report Type: 
  Country: None (occurrence: None)
  Receive Date: 20110203
  Receipt Date: 20101102
  Transmission Date: 20110831
  Serious: No
  Sender: FDA-Public Use
  Company Number: US-ABBOTT-10P-163-0683033-00

PATIENT
  Age: 66 Year
  Sex: Female
  Weight: 77.18 kg

DRUGS (9)
  1. CALCIUM W/VITAMIN D NOS [Concomitant]
     Indication: VITAMIN SUPPLEMENTATION
  2. CRESTOR [Concomitant]
     Indication: BLOOD CHOLESTEROL INCREASED
     Route: 048
     Dates: start: 20101029
  3. SYNTHROID [Suspect]
     Indication: THYROIDECTOMY
     Route: 048
     Dates: start: 20090101
  4. FISH OIL [Concomitant]
     Indication: VITAMIN SUPPLEMENTATION
     Route: 048
  5. SYNTHROID [Suspect]
     Indication: THYROIDECTOMY
     Route: 048
     Dates: start: 20090101, end: 20100901
  6. LEXAPRO [Concomitant]
     Indication: ANXIETY
     Dosage: 0.2 IN 1 DAY - 1/4 TABLET DAILY
     Route: 048
  7. CALCIUM W/VITAMIN D NOS [Concomitant]
     Indication: MINERAL SUPPLEMENTATION
     Route: 048
  8. LOTREL [Concomitant]
     Indication: HYPERTENSION
     Dosage: 5/10 DAILY
     Route: 048
  9. MULTI-VITAMIN [Concomitant]
     Indication: VITAMIN SUPPLEMENTATION
     Route: 048

REACTIONS (2)
  - RASH [None]
  - NASOPHARYNGITIS [None]
